FAERS Safety Report 9754385 (Version 1)
Quarter: 2013Q4

REPORT INFORMATION
  Report Type: Spontaneous
  Country: FR (occurrence: FR)
  Receive Date: 20131213
  Receipt Date: 20131213
  Transmission Date: 20140711
  Serious: Yes (Hospitalization)
  Sender: FDA-Public Use
  Company Number: FR-BRISTOL-MYERS SQUIBB COMPANY-19888270

PATIENT
  Age: 67 Year
  Sex: Male

DRUGS (1)
  1. ELISOR TABS 20 MG [Suspect]
     Dates: start: 20130419

REACTIONS (1)
  - Tendon rupture [Unknown]
